FAERS Safety Report 17461009 (Version 1)
Quarter: 2020Q1

REPORT INFORMATION
  Report Type: Report from Study
  Country: None (occurrence: CO)
  Receive Date: 20200226
  Receipt Date: 20200226
  Transmission Date: 20200409
  Serious: Yes (Other)
  Sender: FDA-Public Use
  Company Number: CO-ABBVIE-20K-036-3288828-00

PATIENT
  Age: 49 Year
  Sex: Male
  Weight: 68 kg

DRUGS (1)
  1. HUMIRA [Suspect]
     Active Substance: ADALIMUMAB
     Indication: CROHN^S DISEASE
     Route: 058
     Dates: start: 20180813, end: 20200124

REACTIONS (10)
  - Device physical property issue [Unknown]
  - Tendonitis [Not Recovered/Not Resolved]
  - Influenza [Recovering/Resolving]
  - Tooth disorder [Recovering/Resolving]
  - Dental implantation [Recovering/Resolving]
  - Musculoskeletal stiffness [Recovering/Resolving]
  - Pain in extremity [Recovering/Resolving]
  - Limb injury [Recovering/Resolving]
  - Rotator cuff syndrome [Not Recovered/Not Resolved]
  - Toothache [Recovering/Resolving]

NARRATIVE: CASE EVENT DATE: 2019
